FAERS Safety Report 17607980 (Version 2)
Quarter: 2020Q2

REPORT INFORMATION
  Report Type: Spontaneous
  Country: RU (occurrence: RU)
  Receive Date: 20200401
  Receipt Date: 20200420
  Transmission Date: 20200713
  Serious: Yes (Other)
  Sender: FDA-Public Use
  Company Number: RU-ROCHE-2572465

PATIENT
  Age: 46 Year
  Sex: Female

DRUGS (1)
  1. KADCYLA [Suspect]
     Active Substance: ADO-TRASTUZUMAB EMTANSINE
     Route: 065

REACTIONS (4)
  - Alanine aminotransferase increased [Recovered/Resolved]
  - Neoplasm [Recovering/Resolving]
  - Aspartate aminotransferase increased [Recovered/Resolved]
  - Thrombocytopenia [Recovered/Resolved]
